FAERS Safety Report 11005362 (Version 2)
Quarter: 2015Q3

REPORT INFORMATION
  Report Type: Spontaneous
  Country: US (occurrence: US)
  Receive Date: 20150409
  Receipt Date: 20150911
  Transmission Date: 20151125
  Serious: Yes (Hospitalization, Other)
  Sender: FDA-Public Use
  Company Number: US-MERCK-1504USA003829

PATIENT
  Sex: Male
  Weight: 113.38 kg

DRUGS (1)
  1. JANUVIA [Suspect]
     Active Substance: SITAGLIPTIN PHOSPHATE
     Indication: TYPE 2 DIABETES MELLITUS
     Dosage: 100 MG, DAILY
     Route: 048
     Dates: start: 20090103, end: 20140605

REACTIONS (10)
  - Pancreatic carcinoma [Unknown]
  - Pancreatectomy [Unknown]
  - Bladder cancer [Unknown]
  - Nephropathy [Recovered/Resolved]
  - Renal failure [Recovered/Resolved]
  - Bladder cancer [Unknown]
  - Bladder operation [Unknown]
  - Nephrolithiasis [Recovered/Resolved]
  - Splenectomy [Unknown]
  - Bladder operation [Unknown]

NARRATIVE: CASE EVENT DATE: 20110724
